FAERS Safety Report 25584789 (Version 2)
Quarter: 2025Q3

REPORT INFORMATION
  Report Type: Spontaneous
  Country: CN (occurrence: CN)
  Receive Date: 20250721
  Receipt Date: 20250819
  Transmission Date: 20251021
  Serious: Yes (Other)
  Sender: TEVA
  Company Number: CN-TEVA-VS-3353405

PATIENT
  Age: 33 Year
  Sex: Female

DRUGS (6)
  1. BENDAMUSTINE [Suspect]
     Active Substance: BENDAMUSTINE
     Indication: Hodgkin^s disease
     Route: 065
  2. BLEOMYCIN [Concomitant]
     Active Substance: BLEOMYCIN SULFATE
     Indication: Hodgkin^s disease
     Route: 065
  3. DOXORUBICIN [Concomitant]
     Active Substance: DOXORUBICIN
     Indication: Hodgkin^s disease
     Route: 065
  4. DACARBAZINE [Concomitant]
     Active Substance: DACARBAZINE
     Indication: Hodgkin^s disease
     Route: 065
  5. VINDESINE [Concomitant]
     Active Substance: VINDESINE
     Indication: Hodgkin^s disease
     Route: 065
  6. SINTILIMAB [Suspect]
     Active Substance: SINTILIMAB
     Indication: Hodgkin^s disease
     Route: 065
     Dates: start: 20200616, end: 2022

REACTIONS (2)
  - Drug ineffective [Unknown]
  - Haemorrhagic erosive gastritis [Recovering/Resolving]
